FAERS Safety Report 5834608-3 (Version None)
Quarter: 2008Q3

REPORT INFORMATION
  Report Type: 
  Country: None (occurrence: None)
  Receive Date: 20080805
  Receipt Date: 20080723
  Transmission Date: 20090109
  Serious: Yes (Disabling)
  Sender: FDA-Public Use
  Company Number: IE-ELI_LILLY_AND_COMPANY-IE200807000395

PATIENT
  Sex: Male
  Weight: 22 kg

DRUGS (6)
  1. STRATTERA [Suspect]
     Indication: ATTENTION DEFICIT/HYPERACTIVITY DISORDER
     Dosage: 10 MG, UNKNOWN
     Route: 048
  2. STRATTERA [Suspect]
     Dosage: 20 MG, UNKNOWN
     Route: 048
  3. METHYLPHENIDATE HCL [Concomitant]
     Dosage: UNK, UNKNOWN
     Route: 065
  4. RISPERIDONE [Concomitant]
     Dosage: UNK, UNKNOWN
     Route: 065
  5. VENTOLINE /00139502/ [Concomitant]
     Indication: ASTHMA
     Dosage: UNK, UNKNOWN
     Route: 065
  6. BECOTIDE [Concomitant]
     Indication: ASTHMA
     Dosage: UNK, UNKNOWN
     Route: 065

REACTIONS (5)
  - ABNORMAL BEHAVIOUR [None]
  - EMOTIONAL DISTRESS [None]
  - HALLUCINATION, AUDITORY [None]
  - MANIA [None]
  - PSYCHOTIC DISORDER [None]
